FAERS Safety Report 6987413-9 (Version None)
Quarter: 2010Q3

REPORT INFORMATION
  Report Type: 
  Country: None (occurrence: None)
  Receive Date: 20100916
  Receipt Date: 20100909
  Transmission Date: 20110219
  Serious: Yes (Hospitalization)
  Sender: FDA-Public Use
  Company Number: FR-BRISTOL-MYERS SQUIBB COMPANY-15281603

PATIENT
  Age: 80 Year
  Sex: Male

DRUGS (8)
  1. IRBESARTAN [Suspect]
     Dosage: NOV09-MAR10;02APR10-02MAY10(31D)
     Dates: start: 20091101, end: 20100502
  2. CRESTOR [Suspect]
     Dates: start: 20100402, end: 20100505
  3. LASIX [Concomitant]
  4. BISOPROLOL FUMARATE [Concomitant]
  5. KARDEGIC [Concomitant]
  6. ZYLORIC [Concomitant]
  7. AMLODIPINE [Concomitant]
  8. INIPOMP [Concomitant]

REACTIONS (1)
  - INTERSTITIAL LUNG DISEASE [None]
